FAERS Safety Report 18480449 (Version 1)
Quarter: 2020Q4

REPORT INFORMATION
  Report Type: Spontaneous
  Country: US (occurrence: US)
  Receive Date: 20201109
  Receipt Date: 20201109
  Transmission Date: 20210114
  Serious: Yes (Hospitalization)
  Sender: FDA-Public Use
  Company Number: None

PATIENT
  Age: 43 Year
  Sex: Male

DRUGS (1)
  1. HUMIRA [Suspect]
     Active Substance: ADALIMUMAB

REACTIONS (5)
  - Fatigue [None]
  - Vomiting [None]
  - Decreased appetite [None]
  - Crohn^s disease [None]
  - Diarrhoea [None]

NARRATIVE: CASE EVENT DATE: 20201013
